FAERS Safety Report 14721290 (Version 1)
Quarter: 2018Q2

REPORT INFORMATION
  Report Type: Report from Study
  Country: HU (occurrence: HU)
  Receive Date: 20180405
  Receipt Date: 20180405
  Transmission Date: 20180711
  Serious: Yes (Hospitalization, Other)
  Sender: FDA-Public Use
  Company Number: HU-TEVA-2018-HU-877226

PATIENT

DRUGS (2)
  1. VICTRELIS [Suspect]
     Active Substance: BOCEPREVIR
     Indication: HEPATITIS C
     Dosage: 800MG THRICE A DAY DURING MEALS
     Route: 048
     Dates: start: 20110909
  2. RIBAVIRIN. [Suspect]
     Active Substance: RIBAVIRIN
     Indication: HEPATITIS C
     Dosage: ACCORDING TO DENSITY
     Route: 048
     Dates: start: 20110909

REACTIONS (3)
  - Asphyxia [Unknown]
  - Anaemia [Unknown]
  - Generalised oedema [Unknown]
